FAERS Safety Report 24376517 (Version 1)
Quarter: 2024Q3

REPORT INFORMATION
  Report Type: Spontaneous
  Country: US (occurrence: None)
  Receive Date: 20240926
  Receipt Date: 20240926
  Transmission Date: 20241017
  Serious: Yes (Hospitalization)
  Sender: Public
  Company Number: None

PATIENT
  Age: 52 Year
  Sex: Male
  Weight: 107 kg

DRUGS (1)
  1. ITRACONAZOLE [Suspect]
     Active Substance: ITRACONAZOLE
     Indication: Cardiac failure congestive
     Dosage: 200.00 MG TWICE A DAY ORAL
     Route: 048

REACTIONS (2)
  - Cardiac failure congestive [None]
  - Liver function test increased [None]

NARRATIVE: CASE EVENT DATE: 20230321
